FAERS Safety Report 4410804-7 (Version None)
Quarter: 2004Q3

REPORT INFORMATION
  Report Type: 
  Country: None (occurrence: None)
  Receive Date: 20040728
  Receipt Date: 20040728
  Transmission Date: 20050211
  Serious: Yes (Other)
  Sender: FDA-Public Use
  Company Number: None

PATIENT
  Sex: Female
  Weight: 95.2554 kg

DRUGS (4)
  1. ZOLOFT [Suspect]
     Indication: ANXIETY
     Dosage: 150 MG ONCE/DAY ORAL
     Route: 048
     Dates: start: 20030901, end: 20040727
  2. ZOLOFT [Suspect]
     Indication: DEPRESSION
     Dosage: 150 MG ONCE/DAY ORAL
     Route: 048
     Dates: start: 20030901, end: 20040727
  3. PRILOSEC [Concomitant]
  4. ZOVIA 1/35E-21 [Concomitant]

REACTIONS (5)
  - CRYING [None]
  - FATIGUE [None]
  - HYPERSOMNIA [None]
  - NERVOUSNESS [None]
  - WEIGHT INCREASED [None]
